FAERS Safety Report 4642372-9 (Version None)
Quarter: 2005Q2

REPORT INFORMATION
  Report Type: 
  Country: None (occurrence: None)
  Receive Date: 20050422
  Receipt Date: 20050419
  Transmission Date: 20051028
  Serious: Yes (Other)
  Sender: FDA-Public Use
  Company Number: CA-GLAXOSMITHKLINE-A0555080A

PATIENT
  Age: 12 Year
  Sex: Male

DRUGS (5)
  1. DEXEDRINE [Suspect]
     Indication: DRUG USE FOR UNKNOWN INDICATION
     Dosage: 25MG UNKNOWN
     Route: 065
  2. CLONIDINE [Suspect]
     Indication: DRUG USE FOR UNKNOWN INDICATION
  3. LORAZEPAM [Suspect]
     Indication: DRUG USE FOR UNKNOWN INDICATION
  4. BENADRYL [Concomitant]
  5. CLOMIPRAMINE [Concomitant]

REACTIONS (8)
  - COORDINATION ABNORMAL [None]
  - DYSARTHRIA [None]
  - ELECTROCARDIOGRAM QRS COMPLEX PROLONGED [None]
  - HALLUCINATION [None]
  - MYDRIASIS [None]
  - MYOCLONUS [None]
  - SEDATION [None]
  - URINARY INCONTINENCE [None]
